FAERS Safety Report 9416405 (Version 1)
Quarter: 2013Q3

REPORT INFORMATION
  Report Type: Spontaneous
  Country: US (occurrence: US)
  Receive Date: 20130724
  Receipt Date: 20130724
  Transmission Date: 20140515
  Serious: No
  Sender: FDA-Public Use
  Company Number: US-PFIZER INC-2013214537

PATIENT
  Sex: 0

DRUGS (4)
  1. ZOLOFT [Suspect]
     Dosage: UNK
  2. SERTRALINE HCL [Suspect]
     Dosage: UNK
  3. ADVIL [Suspect]
     Dosage: UNK
  4. ALEVE [Suspect]
     Dosage: UNK

REACTIONS (1)
  - Dermatitis allergic [Unknown]
